FAERS Safety Report 4720422-9 (Version None)
Quarter: 2005Q3

REPORT INFORMATION
  Report Type: 
  Country: None (occurrence: None)
  Receive Date: 20050719
  Receipt Date: 20050705
  Transmission Date: 20060218
  Serious: Yes (Hospitalization, Disabling, Other)
  Sender: FDA-Public Use
  Company Number: 2005100084

PATIENT
  Age: 43 Year
  Sex: Male

DRUGS (22)
  1. CELEBREX [Suspect]
     Indication: ILL-DEFINED DISORDER
     Dosage: 400 MG (200 MG, 2 IN 1 D)
     Dates: start: 19991228, end: 20030512
  2. NIASPAN [Suspect]
     Indication: ILL-DEFINED DISORDER
     Dosage: 1000 (QHS)
     Dates: start: 19991228
  3. CLARINEX [Concomitant]
  4. LOTENSIN [Concomitant]
  5. PRAVACHOL [Concomitant]
  6. TRICOR [Concomitant]
  7. ZANTAC [Concomitant]
  8. CLARITIN-D [Concomitant]
  9. AMOXIL [Concomitant]
  10. ANAPLEX HD (BROMPHENIRAMINE MALEATE, HYDROCODONE BITARTRATE, PSEUDOEPH [Concomitant]
  11. DEPO-MEDROL [Concomitant]
  12. XYLOCAINE [Concomitant]
  13. SILVADENE (SULFADIAZINE SILVER) [Concomitant]
  14. PANALGESIC (ACETYLSALICYLIC ACID, CODEINE PHOSPHATE, PARACETAMOL) [Concomitant]
  15. KENALOG [Concomitant]
  16. NASONEX [Concomitant]
  17. PROMETHAZINE [Concomitant]
  18. WELLBUTRIN [Concomitant]
  19. ELIDEL [Concomitant]
  20. PEN-VEE-K (PHENOXYMETHYLPENICILLIN POTASSIUM) [Concomitant]
  21. TYLENOL W/ CODEINE NO. 3 [Concomitant]
  22. LORTAB [Concomitant]

REACTIONS (25)
  - ACUTE MYOCARDIAL INFARCTION [None]
  - ARTHRALGIA [None]
  - ATRIOVENTRICULAR BLOCK COMPLETE [None]
  - BLOOD GLUCOSE DECREASED [None]
  - BLOOD GLUCOSE INCREASED [None]
  - BLOOD TRIGLYCERIDES INCREASED [None]
  - BURNS SECOND DEGREE [None]
  - CHRONIC SINUSITIS [None]
  - CONDITION AGGRAVATED [None]
  - CREATINE PHOSPHOKINASE DECREASED [None]
  - DERMATITIS CONTACT [None]
  - DYSPNOEA EXERTIONAL [None]
  - EAR PAIN [None]
  - HAEMATOCRIT INCREASED [None]
  - HIGH DENSITY LIPOPROTEIN INCREASED [None]
  - LOW DENSITY LIPOPROTEIN INCREASED [None]
  - NAUSEA [None]
  - RALES [None]
  - RASH [None]
  - RENAL FAILURE CHRONIC [None]
  - TENDONITIS [None]
  - TOOTH FRACTURE [None]
  - TOOTHACHE [None]
  - VERY LOW DENSITY LIPOPROTEIN INCREASED [None]
  - WEIGHT INCREASED [None]
